FAERS Safety Report 13219672 (Version 2)
Quarter: 2017Q4

REPORT INFORMATION
  Report Type: Other
  Country: US (occurrence: US)
  Receive Date: 20170210
  Receipt Date: 20171213
  Transmission Date: 20180320
  Serious: Yes (Death, Hospitalization, Other)
  Sender: FDA-Public Use
  Company Number: US-ACORDA-ACO_127951_2016

PATIENT
  Age: 59 Year
  Sex: Female

DRUGS (2)
  1. AMPYRA [Suspect]
     Active Substance: DALFAMPRIDINE
     Dosage: 10 MG, BID
     Route: 065
  2. AMPYRA [Suspect]
     Active Substance: DALFAMPRIDINE
     Indication: MULTIPLE SCLEROSIS
     Dosage: 10 MG, BID
     Route: 048
     Dates: start: 2010

REACTIONS (7)
  - Sepsis [Fatal]
  - Multiple sclerosis [Fatal]
  - Urinary tract infection [Fatal]
  - Dysphagia [Recovered/Resolved]
  - Multiple sclerosis [Unknown]
  - Multiple sclerosis relapse [Recovered/Resolved]
  - Septic shock [Fatal]

NARRATIVE: CASE EVENT DATE: 2016
